FAERS Safety Report 23071772 (Version 1)
Quarter: 2023Q4

REPORT INFORMATION
  Report Type: Spontaneous
  Country: US (occurrence: US)
  Receive Date: 20231017
  Receipt Date: 20231017
  Transmission Date: 20240110
  Serious: No
  Sender: FDA-Public Use
  Company Number: US-PURDUE PHARMA-USA-2021-0254971

PATIENT

DRUGS (1)
  1. OXYCODONE HYDROCHLORIDE [Suspect]
     Active Substance: OXYCODONE HYDROCHLORIDE
     Indication: Analgesic therapy
     Dosage: 30 MG, UNK
     Route: 048

REACTIONS (4)
  - Illness [Unknown]
  - Nausea [Unknown]
  - Hyperhidrosis [Unknown]
  - Inadequate analgesia [Unknown]
